FAERS Safety Report 8405952-0 (Version None)
Quarter: 2012Q2

REPORT INFORMATION
  Report Type: 
  Country: None (occurrence: None)
  Receive Date: 20120323
  Receipt Date: 20110524
  Transmission Date: 20120825
  Serious: Yes (Other)
  Sender: FDA-Public Use
  Company Number: 163-21880-10031030

PATIENT
  Age: 76 Year
  Sex: Female

DRUGS (5)
  1. ASPIRIN [Concomitant]
  2. DEXAMETHASONE [Concomitant]
  3. REVLIMID [Suspect]
     Indication: MULTIPLE MYELOMA
     Dosage: 10 MG, DAILY X 21 DAYS, PO, 5 MG, 1 IN 1 D, PO, 10 MG, EVERY MONDAY AND THURSDAY, PO
     Route: 048
     Dates: start: 20070125, end: 20090101
  4. REVLIMID [Suspect]
     Indication: MULTIPLE MYELOMA
     Dosage: 10 MG, DAILY X 21 DAYS, PO, 5 MG, 1 IN 1 D, PO, 10 MG, EVERY MONDAY AND THURSDAY, PO
     Route: 048
     Dates: start: 20091201
  5. REVLIMID [Suspect]
     Indication: MULTIPLE MYELOMA
     Dosage: 10 MG, DAILY X 21 DAYS, PO, 5 MG, 1 IN 1 D, PO, 10 MG, EVERY MONDAY AND THURSDAY, PO
     Route: 048
     Dates: start: 20090801, end: 20090101

REACTIONS (1)
  - BLOOD CREATININE INCREASED [None]
